FAERS Safety Report 5680388-4 (Version None)
Quarter: 2008Q1

REPORT INFORMATION
  Report Type: 
  Country: None (occurrence: None)
  Receive Date: 20080326
  Receipt Date: 20080311
  Transmission Date: 20080703
  Serious: No
  Sender: FDA-Public Use
  Company Number: US-AVENTIS-200718317US

PATIENT
  Sex: Male
  Weight: 114.53 kg

DRUGS (2)
  1. KETEK [Suspect]
     Route: 048
     Dates: start: 20060106, end: 20060116
  2. KETEK [Suspect]
     Route: 048
     Dates: start: 20060405, end: 20060415

REACTIONS (2)
  - INJURY [None]
  - LIVER DISORDER [None]
